FAERS Safety Report 5065777-3 (Version None)
Quarter: 2006Q3

REPORT INFORMATION
  Report Type: 
  Country: None (occurrence: None)
  Receive Date: 20060731
  Receipt Date: 20060717
  Transmission Date: 20061208
  Serious: Yes (Death, Hospitalization)
  Sender: FDA-Public Use
  Company Number: US-ROCHE-455993

PATIENT
  Age: 61 Year
  Sex: Female

DRUGS (2)
  1. PEGASYS [Suspect]
     Dosage: ROUTE REPORTED AS INJ.
     Route: 050
     Dates: start: 20051115
  2. PEGASYS [Suspect]
     Dosage: REDUCED BY END OF THERAPY.
     Route: 050

REACTIONS (3)
  - DEATH [None]
  - HAEMOPTYSIS [None]
  - PLATELET COUNT DECREASED [None]
